FAERS Safety Report 6527050-3 (Version None)
Quarter: 2009Q4

REPORT INFORMATION
  Report Type: 
  Country: None (occurrence: None)
  Receive Date: 20091218
  Receipt Date: 20091109
  Transmission Date: 20100525
  Serious: No
  Sender: FDA-Public Use
  Company Number: 007974

PATIENT
  Age: 81 Year
  Sex: Female
  Weight: 52.2 kg

DRUGS (9)
  1. SAMSCA [Suspect]
     Indication: BLADDER DISORDER
     Dosage: 15 MG, DAILY DOSE, ORAL
     Route: 048
     Dates: start: 20091016
  2. SAMSCA [Suspect]
     Indication: BLOOD SODIUM DECREASED
     Dosage: 15 MG, DAILY DOSE, ORAL
     Route: 048
     Dates: start: 20091016
  3. EVISTA (RALOXIFENE HDYROCHLORIDE) [Concomitant]
  4. SYNTHROID [Concomitant]
  5. AMLODIPINE BESYLATE [Concomitant]
  6. VALSARTAN [Concomitant]
  7. CITALOPRAM HYDROBROMIDE [Concomitant]
  8. VITAMINS [Concomitant]
  9. CYCLOSPORINE [Concomitant]

REACTIONS (2)
  - DRY THROAT [None]
  - WEIGHT DECREASED [None]
